FAERS Safety Report 4313684-3 (Version None)
Quarter: 2004Q1

REPORT INFORMATION
  Report Type: 
  Country: None (occurrence: None)
  Receive Date: 20040305
  Receipt Date: 20040223
  Transmission Date: 20041129
  Serious: Yes (Death)
  Sender: FDA-Public Use
  Company Number: USA-2003-0011483

PATIENT
  Age: 72 Year
  Sex: Male
  Weight: 73.9 kg

DRUGS (1)
  1. OXYCODONE HCL [Suspect]
     Dosage: MG,

REACTIONS (7)
  - AORTIC ATHEROSCLEROSIS [None]
  - COMPLETED SUICIDE [None]
  - CORONARY ARTERY ATHEROSCLEROSIS [None]
  - GUN SHOT WOUND [None]
  - HEAD INJURY [None]
  - HEPATIC NEOPLASM [None]
  - METASTATIC NEOPLASM [None]
